FAERS Safety Report 8136218-4 (Version None)
Quarter: 2012Q1

REPORT INFORMATION
  Report Type: 
  Country: None (occurrence: None)
  Receive Date: 20120214
  Receipt Date: 20120210
  Transmission Date: 20120608
  Serious: Yes (Other)
  Sender: FDA-Public Use
  Company Number: US-JNJFOC-20120205760

PATIENT
  Age: 12 Year
  Sex: Female

DRUGS (2)
  1. VITAMINS NOS [Concomitant]
     Indication: GENERAL PHYSICAL CONDITION
     Route: 065
     Dates: start: 20100101
  2. RESTORING LISTERINE ANTICAVITY FLUORIDE MOUTHWASH [Suspect]
     Indication: DENTAL DISORDER PROPHYLAXIS
     Dosage: ONE TEASPOONFUL
     Route: 048

REACTIONS (4)
  - ORAL MUCOSAL ERYTHEMA [None]
  - OEDEMA MOUTH [None]
  - STOMATITIS [None]
  - ORAL PAIN [None]
